FAERS Safety Report 9201255 (Version 1)
Quarter: 2013Q2

REPORT INFORMATION
  Report Type: Spontaneous
  Country: GB (occurrence: GB)
  Receive Date: 20130401
  Receipt Date: 20130401
  Transmission Date: 20140414
  Serious: Yes (Other)
  Sender: FDA-Public Use
  Company Number: PHFR2013GB001976

PATIENT
  Age: 27 Year
  Sex: Female
  Weight: 84 kg

DRUGS (3)
  1. CLOZAPINE [Suspect]
     Dosage: 325 MG, UNK
     Route: 048
     Dates: start: 20050614
  2. CLOZAPINE [Suspect]
     Dosage: 100 MG, UNK
     Route: 048
     Dates: end: 20130225
  3. ARIPIPRAZOLE [Concomitant]

REACTIONS (3)
  - Ovarian cyst [Unknown]
  - Hypertrichosis [Unknown]
  - Blood testosterone increased [Unknown]
